FAERS Safety Report 21536385 (Version 1)
Quarter: 2022Q4

REPORT INFORMATION
  Report Type: Spontaneous
  Country: IT (occurrence: IT)
  Receive Date: 20221101
  Receipt Date: 20221101
  Transmission Date: 20230113
  Serious: Yes (Other)
  Sender: FDA-Public Use
  Company Number: IT-STADA-257403

PATIENT
  Age: 20 Year
  Sex: Male

DRUGS (14)
  1. ARIPIPRAZOLE [Suspect]
     Active Substance: ARIPIPRAZOLE
     Indication: Intellectual disability
     Dosage: UNK
     Route: 065
  2. CLOZAPINE [Suspect]
     Active Substance: CLOZAPINE
     Indication: Intellectual disability
     Dosage: UNK
     Route: 065
  3. QUETIAPINE [Suspect]
     Active Substance: QUETIAPINE
     Indication: Intellectual disability
     Dosage: UNK
     Route: 065
  4. OLANZAPINE [Suspect]
     Active Substance: OLANZAPINE
     Indication: Intellectual disability
     Dosage: UNK
     Route: 065
  5. RISPERIDONE [Suspect]
     Active Substance: RISPERIDONE
     Indication: Intellectual disability
     Dosage: UNK
     Route: 065
  6. CLOTHIAPINE [Suspect]
     Active Substance: CLOTHIAPINE
     Indication: Intellectual disability
     Dosage: UNK
     Route: 065
  7. LEVOMEPROMAZINE [Suspect]
     Active Substance: LEVOMEPROMAZINE
     Indication: Intellectual disability
     Dosage: UNK
     Route: 065
  8. FLUVOXAMINE [Concomitant]
     Active Substance: FLUVOXAMINE
     Indication: Intellectual disability
     Dosage: UNK
     Route: 065
  9. DELORAZEPAM [Concomitant]
     Active Substance: DELORAZEPAM
     Indication: Intellectual disability
     Dosage: UNK
     Route: 065
  10. TETRABENAZINE [Concomitant]
     Active Substance: TETRABENAZINE
     Indication: Intellectual disability
     Dosage: UNK
     Route: 065
  11. TOPIRAMATE [Concomitant]
     Active Substance: TOPIRAMATE
     Indication: Intellectual disability
     Dosage: UNK
     Route: 065
  12. LAMOTRIGINE [Concomitant]
     Active Substance: LAMOTRIGINE
     Indication: Intellectual disability
     Dosage: UNK
     Route: 065
  13. CLONAZEPAM [Concomitant]
     Active Substance: CLONAZEPAM
     Indication: Intellectual disability
     Dosage: UNK
     Route: 065
  14. PAROXETINE [Concomitant]
     Active Substance: PAROXETINE
     Indication: Intellectual disability
     Dosage: UNK
     Route: 065

REACTIONS (1)
  - Dystonia [Unknown]
